FAERS Safety Report 4513668-6 (Version None)
Quarter: 2004Q4

REPORT INFORMATION
  Report Type: 
  Country: None (occurrence: None)
  Receive Date: 20041130
  Receipt Date: 20040823
  Transmission Date: 20050328
  Serious: No
  Sender: FDA-Public Use
  Company Number: US-GLAXOSMITHKLINE-A0523045A

PATIENT
  Age: 47 Year
  Sex: Female

DRUGS (3)
  1. WELLBUTRIN XL [Suspect]
     Indication: ILL-DEFINED DISORDER
     Dosage: 300MG PER DAY
     Route: 048
     Dates: start: 20040628
  2. GABITRIL [Concomitant]
  3. TRAZODONE HCL [Concomitant]

REACTIONS (1)
  - HAEMORRHAGE SUBCUTANEOUS [None]
